FAERS Safety Report 9215415 (Version 1)
Quarter: 2013Q2

REPORT INFORMATION
  Report Type: Report from Study
  Country: FR (occurrence: FR)
  Receive Date: 20130405
  Receipt Date: 20130405
  Transmission Date: 20140414
  Serious: Yes (Hospitalization)
  Sender: FDA-Public Use
  Company Number: FR-AMGEN-KDC422169

PATIENT
  Age: 64 Year
  Sex: Male

DRUGS (8)
  1. DENOSUMAB [Suspect]
     Indication: PROSTATE CANCER
     Dosage: UNK UNK, Q4WK
     Route: 058
     Dates: start: 20080506, end: 20100303
  2. ATENOLOL [Concomitant]
     Dosage: 100 MG, QD
     Route: 048
     Dates: start: 1974
  3. IRBESARTAN [Concomitant]
     Dosage: 300 MG, QD
     Route: 048
     Dates: start: 2006
  4. HYDROCHLOROTHIAZIDE [Concomitant]
     Dosage: 12.5 MG, QD
     Route: 048
     Dates: start: 2006
  5. MANIDIPINE [Concomitant]
     Dosage: 10 MG, QD
     Route: 048
     Dates: start: 2006
  6. FLUVASTATIN SODIUM [Concomitant]
     Dosage: 80 MG, QD
     Route: 048
     Dates: start: 2006
  7. EZETIMIBE [Concomitant]
     Dosage: 10 MG, QD
     Route: 048
     Dates: start: 2006
  8. LEUPRORELIN [Concomitant]
     Dosage: UNK UNK, UNK
     Dates: start: 20050416

REACTIONS (1)
  - Osteitis [Recovering/Resolving]
